FAERS Safety Report 19083515 (Version 1)
Quarter: 2021Q2

REPORT INFORMATION
  Report Type: Spontaneous
  Country: FR (occurrence: FR)
  Receive Date: 20210401
  Receipt Date: 20210401
  Transmission Date: 20210717
  Serious: Yes (Other)
  Sender: FDA-Public Use
  Company Number: FR-PFIZER INC-2021311261

PATIENT
  Age: 65 Year
  Sex: Female

DRUGS (3)
  1. TOVIAZ [Suspect]
     Active Substance: FESOTERODINE FUMARATE
     Indication: URINARY INCONTINENCE
     Dosage: 1 DF, 1X/DAY
     Route: 048
     Dates: start: 2016
  2. VIGNE ROUGE [Concomitant]
     Dosage: UNK
     Route: 048
  3. MONASCUS PURPUREUS [Concomitant]
     Active Substance: RED YEAST
     Dosage: UNK
     Route: 048

REACTIONS (1)
  - Pemphigoid [Not Recovered/Not Resolved]

NARRATIVE: CASE EVENT DATE: 20191126
